FAERS Safety Report 8321302 (Version 7)
Quarter: 2012Q4

REPORT INFORMATION
  Report Type: Report from Study
  Country: NL (occurrence: NL)
  Receive Date: 20120104
  Receipt Date: 20120829
  Transmission Date: 20130627
  Serious: Yes (Other)
  Sender: FDA-Public Use
  Company Number: NL-CELGENEUS-114-21880-11122905

PATIENT
  Age: 76 Year
  Sex: Male
  Weight: 87 kg

DRUGS (7)
  1. REVLIMID [Suspect]
     Indication: MULTIPLE MYELOMA
     Route: 048
     Dates: start: 20100504
  2. REVLIMID [Suspect]
     Route: 048
     Dates: start: 20110110
  3. REVLIMID [Suspect]
     Dosage: 10 Milligram
     Route: 048
     Dates: start: 20100923
  4. MELPHALAN [Suspect]
     Indication: MULTIPLE MYELOMA
     Route: 065
     Dates: start: 20100504
  5. MELPHALAN [Suspect]
     Dosage: 16 Milligram
     Route: 048
     Dates: start: 20100923
  6. PREDNISONE [Suspect]
     Indication: MULTIPLE MYELOMA
     Route: 065
     Dates: start: 20100504
  7. PREDNISONE [Suspect]
     Dosage: 140 Milligram
     Route: 048
     Dates: start: 20100923

REACTIONS (1)
  - Basal cell carcinoma [Recovered/Resolved]
